FAERS Safety Report 10344811 (Version 1)
Quarter: 2014Q3

REPORT INFORMATION
  Report Type: Spontaneous
  Country: US (occurrence: US)
  Receive Date: 20140728
  Receipt Date: 20140728
  Transmission Date: 20150326
  Serious: Yes (Other)
  Sender: FDA-Public Use
  Company Number: US-JNJFOC-20140711647

PATIENT
  Age: 49 Year
  Sex: Female
  Weight: 47.63 kg

DRUGS (25)
  1. DURAGESIC [Suspect]
     Active Substance: FENTANYL
     Indication: FIBROMYALGIA
     Route: 062
     Dates: start: 20140620
  2. NEURONTIN [Concomitant]
     Active Substance: GABAPENTIN
     Indication: PAIN
     Route: 048
     Dates: start: 2009
  3. DURAGESIC [Suspect]
     Active Substance: FENTANYL
     Indication: ENDOMETRIOSIS
     Route: 062
  4. DURAGESIC [Suspect]
     Active Substance: FENTANYL
     Indication: PAIN
     Route: 062
     Dates: start: 2002, end: 2014
  5. DICLOFENAC SODIUM. [Concomitant]
     Active Substance: DICLOFENAC SODIUM
     Indication: ANTIINFLAMMATORY THERAPY
     Route: 048
  6. DURAGESIC [Suspect]
     Active Substance: FENTANYL
     Indication: ENDOMETRIOSIS
     Route: 062
     Dates: start: 2014
  7. DURAGESIC [Suspect]
     Active Substance: FENTANYL
     Indication: FIBROMYALGIA
     Route: 062
     Dates: start: 2014
  8. OXYCODONE/ACETAMINOPHEN [Concomitant]
     Active Substance: ACETAMINOPHEN\OXYCODONE\OXYCODONE HYDROCHLORIDE
     Indication: PAIN
     Route: 048
     Dates: start: 20140620
  9. DURAGESIC [Suspect]
     Active Substance: FENTANYL
     Indication: SCIATICA
     Route: 062
     Dates: start: 20140620
  10. DURAGESIC [Suspect]
     Active Substance: FENTANYL
     Indication: PAIN
     Route: 062
     Dates: start: 2014
  11. DURAGESIC [Suspect]
     Active Substance: FENTANYL
     Indication: SCIATICA
     Route: 062
     Dates: start: 2002, end: 2014
  12. DURAGESIC [Suspect]
     Active Substance: FENTANYL
     Indication: SCIATICA
     Route: 062
  13. DURAGESIC [Suspect]
     Active Substance: FENTANYL
     Indication: FIBROMYALGIA
     Route: 062
  14. DURAGESIC [Suspect]
     Active Substance: FENTANYL
     Indication: ENDOMETRIOSIS
     Route: 062
     Dates: start: 20140620
  15. DURAGESIC [Suspect]
     Active Substance: FENTANYL
     Indication: FIBROMYALGIA
     Route: 062
  16. DURAGESIC [Suspect]
     Active Substance: FENTANYL
     Indication: PAIN
     Route: 062
  17. LAMICTAL [Concomitant]
     Active Substance: LAMOTRIGINE
     Indication: PAIN
     Route: 048
     Dates: start: 2009
  18. DURAGESIC [Suspect]
     Active Substance: FENTANYL
     Indication: SCIATICA
     Route: 062
  19. DURAGESIC [Suspect]
     Active Substance: FENTANYL
     Indication: PAIN
     Route: 062
     Dates: start: 20140620
  20. DURAGESIC [Suspect]
     Active Substance: FENTANYL
     Indication: FIBROMYALGIA
     Route: 062
     Dates: start: 2002, end: 2014
  21. DURAGESIC [Suspect]
     Active Substance: FENTANYL
     Indication: SCIATICA
     Route: 062
     Dates: start: 2014
  22. DURAGESIC [Suspect]
     Active Substance: FENTANYL
     Indication: ENDOMETRIOSIS
     Route: 062
     Dates: start: 2002, end: 2014
  23. DURAGESIC [Suspect]
     Active Substance: FENTANYL
     Indication: ENDOMETRIOSIS
     Route: 062
  24. DURAGESIC [Suspect]
     Active Substance: FENTANYL
     Indication: PAIN
     Route: 062
  25. LIDODERM [Concomitant]
     Active Substance: LIDOCAINE
     Indication: PAIN
     Route: 062
     Dates: start: 2006

REACTIONS (8)
  - Product quality issue [Unknown]
  - Mouth haemorrhage [Recovered/Resolved]
  - Mobility decreased [Not Recovered/Not Resolved]
  - Drug dose omission [Not Recovered/Not Resolved]
  - Product outer packaging issue [Unknown]
  - Product quality issue [Unknown]
  - Pain [Not Recovered/Not Resolved]
  - Tooth infection [Recovered/Resolved]

NARRATIVE: CASE EVENT DATE: 2014
